FAERS Safety Report 9426068 (Version 2)
Quarter: 2013Q3

REPORT INFORMATION
  Report Type: Spontaneous
  Country: FR (occurrence: FR)
  Receive Date: 20130730
  Receipt Date: 20130917
  Transmission Date: 20140515
  Serious: Yes (Hospitalization)
  Sender: FDA-Public Use
  Company Number: FR-ROCHE-1249917

PATIENT
  Age: 60 Year
  Sex: Female
  Weight: 79 kg

DRUGS (9)
  1. ROACTEMRA [Suspect]
     Indication: RHEUMATOID ARTHRITIS
     Dosage: TOTAL MONTHLY DOSE: 630 MG
     Route: 041
     Dates: start: 20130503, end: 20130628
  2. ROACTEMRA [Suspect]
     Route: 042
     Dates: start: 20130628, end: 20130628
  3. SKENAN LP [Concomitant]
     Indication: PAIN
     Route: 048
  4. CYMBALTA [Concomitant]
     Indication: PAIN
     Route: 048
  5. CYMBALTA [Concomitant]
     Indication: DEPRESSION
  6. FORLAX (FRANCE) [Concomitant]
     Indication: CONSTIPATION
     Dosage: ONGOING TREATMENT
     Route: 048
  7. INIPOMP [Concomitant]
     Indication: GASTRITIS
     Route: 065
  8. NOCTAMIDE [Concomitant]
     Indication: INSOMNIA
     Route: 048
  9. CETIRIZINE [Concomitant]
     Indication: PREMEDICATION
     Dosage: 1H BEFORE THE INFUSION - TREATMENT DISCONTINUED
     Route: 048

REACTIONS (5)
  - Urticaria [Recovered/Resolved]
  - Lip oedema [Recovered/Resolved]
  - Paraesthesia oral [Recovered/Resolved]
  - Chest discomfort [Recovered/Resolved]
  - Urinary tract infection [Unknown]
